FAERS Safety Report 8544999-0 (Version None)
Quarter: 2012Q3

REPORT INFORMATION
  Report Type: 
  Country: None (occurrence: None)
  Receive Date: 20120727
  Receipt Date: 20090331
  Transmission Date: 20120928
  Serious: Yes (Hospitalization)
  Sender: FDA-Public Use
  Company Number: FR-GLAXOSMITHKLINE-B0568015A

PATIENT
  Sex: Male
  Weight: 67 kg

DRUGS (3)
  1. PLACEBO [Suspect]
     Dates: start: 20080505
  2. ELECTRICAL STIMULATION OF NERVOUS SYSTEM [Concomitant]
     Indication: PARKINSON'S DISEASE
  3. REQUIP [Suspect]
     Indication: PARKINSON'S DISEASE
     Dosage: 7MG THREE TIMES PER DAY
     Route: 048
     Dates: start: 20080505

REACTIONS (3)
  - RESTING TREMOR [None]
  - AKINESIA [None]
  - MOTOR DYSFUNCTION [None]
